FAERS Safety Report 9881362 (Version 2)
Quarter: 2014Q2

REPORT INFORMATION
  Report Type: Report from Study
  Country: NL (occurrence: NL)
  Receive Date: 20140207
  Receipt Date: 20140415
  Transmission Date: 20141212
  Serious: Yes (Hospitalization, Other)
  Sender: FDA-Public Use
  Company Number: PHHY2014NL014408

PATIENT
  Sex: Male

DRUGS (11)
  1. ZOMETA [Suspect]
     Indication: PROSTATE CANCER METASTATIC
     Dosage: 4 MG/100 ML, ONCE PER 8 WEEKS
     Route: 042
     Dates: end: 20140403
  2. ZOMETA [Suspect]
     Dosage: 4 MG/100 ML, ONCE PER 8 WEEKS
     Route: 042
     Dates: start: 20111208
  3. ZOMETA [Suspect]
     Dosage: 4 MG/100 ML, ONCE PER 8 WEEKS
     Route: 042
     Dates: start: 20131212
  4. ZOMETA [Suspect]
     Dosage: 4 MG/100 ML, ONCE PER 8 WEEKS
     Route: 042
     Dates: start: 20140204, end: 20140403
  5. ASCAL [Concomitant]
     Dosage: UNK UKN, UNK
  6. PERSANTIN [Concomitant]
     Dosage: UNK UKN, UNK
  7. METOPROLOL [Concomitant]
     Dosage: UNK UKN, UNK
  8. PERINDOPRIL [Concomitant]
     Dosage: UNK UKN, UNK
  9. LIPITOR [Concomitant]
     Dosage: UNK UKN, UNK
  10. PROMOCARD [Concomitant]
     Dosage: UNK UKN, UNK
  11. ISORDIL [Concomitant]
     Dosage: UNK UKN, UNK

REACTIONS (3)
  - Intra-abdominal haematoma [Recovered/Resolved]
  - Abdominal injury [Recovered/Resolved]
  - Renal failure chronic [Unknown]
